FAERS Safety Report 24403703 (Version 1)
Quarter: 2024Q4

REPORT INFORMATION
  Report Type: Spontaneous
  Country: US (occurrence: US)
  Receive Date: 20241007
  Receipt Date: 20241007
  Transmission Date: 20250115
  Serious: No
  Sender: ROCHE
  Company Number: US-ROCHE-3490832

PATIENT
  Age: 76 Year
  Sex: Male

DRUGS (3)
  1. GAZYVA [Interacting]
     Active Substance: OBINUTUZUMAB
     Indication: Product used for unknown indication
     Route: 065
  2. DUPIXENT [Interacting]
     Active Substance: DUPILUMAB
     Indication: Dermatitis atopic
     Route: 058
  3. BENDAMUSTINE [Concomitant]
     Active Substance: BENDAMUSTINE

REACTIONS (1)
  - Drug interaction [Unknown]
